FAERS Safety Report 10246511 (Version 3)
Quarter: 2015Q1

REPORT INFORMATION
  Report Type: Spontaneous
  Country: US (occurrence: US)
  Receive Date: 20140619
  Receipt Date: 20150126
  Transmission Date: 20150720
  Serious: Yes (Hospitalization, Other)
  Sender: FDA-Public Use
  Company Number: US-BAYER-2014-089328

PATIENT
  Age: 28 Year
  Sex: Female
  Weight: 77 kg

DRUGS (3)
  1. ORTHO MICRONOR-28 [Concomitant]
     Dosage: UNK
     Dates: start: 2012
  2. MIRENA [Suspect]
     Active Substance: LEVONORGESTREL
     Indication: CONTRACEPTION
     Dosage: 20 MCG/24HR, CONT
     Route: 015
     Dates: start: 20111109, end: 20130611
  3. APRI [Concomitant]
     Active Substance: DESOGESTREL\ETHINYL ESTRADIOL
     Indication: CONTRACEPTION
     Dosage: UNK
     Dates: start: 2011

REACTIONS (8)
  - Lung disorder [None]
  - Embedded device [None]
  - Pain [None]
  - Off label use [None]
  - Injury [None]
  - Sepsis [None]
  - Emotional distress [None]
  - Medical device discomfort [None]

NARRATIVE: CASE EVENT DATE: 2011
